FAERS Safety Report 18461643 (Version 1)
Quarter: 2020Q4

REPORT INFORMATION
  Report Type: Spontaneous
  Country: US (occurrence: US)
  Receive Date: 20201104
  Receipt Date: 20201104
  Transmission Date: 20210114
  Serious: Yes (Death, Other)
  Sender: FDA-Public Use
  Company Number: US-HIKMA PHARMACEUTICALS USA INC.-US-H14001-20-04818

PATIENT
  Sex: Male

DRUGS (1)
  1. METHADONE [Suspect]
     Active Substance: METHADONE HYDROCHLORIDE
     Indication: DRUG USE DISORDER
     Dosage: UNKNOWN
     Route: 064

REACTIONS (7)
  - Foetal placental thrombosis [Fatal]
  - Hypoxic-ischaemic encephalopathy [Fatal]
  - Renal vein thrombosis [Fatal]
  - Hypoxia [Fatal]
  - Neonatal respiratory depression [Fatal]
  - Vena cava thrombosis [Fatal]
  - Foetal exposure during pregnancy [Recovered/Resolved]
